FAERS Safety Report 13631792 (Version 1)
Quarter: 2017Q2

REPORT INFORMATION
  Report Type: Spontaneous
  Country: US (occurrence: US)
  Receive Date: 20170608
  Receipt Date: 20170608
  Transmission Date: 20170830
  Serious: No
  Sender: FDA-Public Use
  Company Number: US-ACTELION-A-NJ2017-155025

PATIENT
  Sex: Female
  Weight: 99.77 kg

DRUGS (3)
  1. UPTRAVI [Suspect]
     Active Substance: SELEXIPAG
     Indication: PULMONARY ARTERIAL HYPERTENSION
     Dosage: 800 MCG, BID
     Route: 048
  2. AMLODIPINE [Concomitant]
     Active Substance: AMLODIPINE BESYLATE
  3. OPSUMIT [Concomitant]
     Active Substance: MACITENTAN
     Indication: PULMONARY ARTERIAL HYPERTENSION
     Route: 048

REACTIONS (11)
  - Insomnia [Unknown]
  - Diarrhoea [Unknown]
  - Dysstasia [Unknown]
  - Fatigue [Unknown]
  - Aggression [Unknown]
  - Pain in extremity [Unknown]
  - Crying [Unknown]
  - Memory impairment [Unknown]
  - Toothache [Unknown]
  - Headache [Unknown]
  - Nausea [Unknown]
